FAERS Safety Report 5033236-X (Version None)
Quarter: 2006Q2

REPORT INFORMATION
  Report Type: 
  Country: None (occurrence: None)
  Receive Date: 20060620
  Receipt Date: 20060615
  Transmission Date: 20061013
  Serious: Yes (Life-Threatening)
  Sender: FDA-Public Use
  Company Number: LTI2006A00148

PATIENT
  Age: 79 Year
  Sex: Female

DRUGS (15)
  1. ACTOS [Suspect]
     Indication: DIABETES MELLITUS NON-INSULIN-DEPENDENT
     Dosage: 15 MG (15 MG, 1 IN 1 D)
     Route: 048
     Dates: start: 20060210
  2. MOTILIUM [Suspect]
     Dosage: 2 DF (1 DF, 2 IN 1 D)
     Route: 048
     Dates: start: 20060207
  3. MORPHINE SULFATE [Concomitant]
  4. PYOSTACINE(PRISTINAMYCIN) [Concomitant]
  5. FUCIDINE CAP [Concomitant]
  6. PRAVASTATIN [Concomitant]
  7. INEXIUM(ESOMEPRAZOLE) [Concomitant]
  8. AMARYL [Concomitant]
  9. PRAXILENE(NAFTIDROFURYL OXALATE) [Concomitant]
  10. PLAVIX [Concomitant]
  11. HYPERIUM(RILMENIDINE) [Concomitant]
  12. XANAX [Concomitant]
  13. DUPHALAC [Concomitant]
  14. COZAAR [Concomitant]
  15. MORPHINE SULFATE [Concomitant]

REACTIONS (2)
  - LARYNGEAL OEDEMA [None]
  - TONGUE OEDEMA [None]
